FAERS Safety Report 24979519 (Version 1)
Quarter: 2025Q1

REPORT INFORMATION
  Report Type: Spontaneous
  Country: JP (occurrence: JP)
  Receive Date: 20250218
  Receipt Date: 20250218
  Transmission Date: 20250408
  Serious: Yes (Other)
  Sender: Steriscience PTE
  Company Number: JP-STERISCIENCE B.V.-2025-ST-000247

PATIENT
  Age: 37 Year
  Sex: Female

DRUGS (3)
  1. BUPIVACAINE [Suspect]
     Active Substance: BUPIVACAINE
     Indication: Spinal anaesthesia
     Route: 065
  2. FENTANYL [Suspect]
     Active Substance: FENTANYL
     Indication: Spinal anaesthesia
     Route: 065
  3. MORPHINE [Suspect]
     Active Substance: MORPHINE
     Indication: Spinal anaesthesia
     Route: 065

REACTIONS (2)
  - Post lumbar puncture syndrome [None]
  - Maternal exposure during delivery [Unknown]
